FAERS Safety Report 6192734-6 (Version None)
Quarter: 2009Q2

REPORT INFORMATION
  Report Type: 
  Country: None (occurrence: None)
  Receive Date: 20090518
  Receipt Date: 20090513
  Transmission Date: 20091009
  Serious: Yes (Hospitalization, Other)
  Sender: FDA-Public Use
  Company Number: US-BRISTOL-MYERS SQUIBB COMPANY-14624316

PATIENT
  Age: 70 Year
  Sex: Male
  Weight: 64 kg

DRUGS (2)
  1. CETUXIMAB [Suspect]
     Indication: HEAD AND NECK CANCER
     Dosage: INITIATED ON 02APR09.
     Route: 041
     Dates: start: 20090506, end: 20090506
  2. CISPLATIN [Suspect]
     Indication: HEAD AND NECK CANCER
     Dosage: INITIATED ON 08APR09
     Route: 041
     Dates: start: 20090506, end: 20090506

REACTIONS (5)
  - ANAEMIA [None]
  - HYPOTENSION [None]
  - PNEUMONIA [None]
  - SEPTIC SHOCK [None]
  - SYNCOPE [None]
